FAERS Safety Report 4640454-9 (Version None)
Quarter: 2005Q2

REPORT INFORMATION
  Report Type: 
  Country: None (occurrence: None)
  Receive Date: 20050419
  Receipt Date: 20050412
  Transmission Date: 20051028
  Serious: Yes (Other)
  Sender: FDA-Public Use
  Company Number: 2003028246

PATIENT
  Sex: Female
  Weight: 86.1834 kg

DRUGS (2)
  1. NORVASC [Suspect]
     Indication: HYPERTENSION
     Dosage: 5 MG (DAILY), ORAL
     Route: 048
     Dates: start: 20020301
  2. PREDNISONE [Suspect]
     Indication: RED BLOOD CELL COUNT DECREASED

REACTIONS (8)
  - ANAEMIA HAEMOLYTIC AUTOIMMUNE [None]
  - DISEASE RECURRENCE [None]
  - EXOSTOSIS [None]
  - HYPERTENSION [None]
  - JOINT SWELLING [None]
  - OEDEMA PERIPHERAL [None]
  - PAIN IN EXTREMITY [None]
  - PANIC REACTION [None]
